FAERS Safety Report 9637039 (Version 1)
Quarter: 2013Q4

REPORT INFORMATION
  Report Type: Spontaneous
  Country: GR (occurrence: GR)
  Receive Date: 20131022
  Receipt Date: 20131022
  Transmission Date: 20140711
  Serious: Yes (Other)
  Sender: FDA-Public Use
  Company Number: GR-SHIRE-ALL1-2013-06962

PATIENT
  Age: 52 Year
  Sex: Female

DRUGS (1)
  1. XAGRID [Suspect]
     Indication: ESSENTIAL THROMBOCYTHAEMIA
     Dosage: UNK UNK, UNKNOWN
     Route: 048
     Dates: start: 2009

REACTIONS (3)
  - Tuberculosis [Not Recovered/Not Resolved]
  - Lymphadenopathy [Unknown]
  - Necrotising granulomatous lymphadenitis [Not Recovered/Not Resolved]
